FAERS Safety Report 18440734 (Version 1)
Quarter: 2020Q4

REPORT INFORMATION
  Report Type: Spontaneous
  Country: AR (occurrence: AR)
  Receive Date: 20201029
  Receipt Date: 20201029
  Transmission Date: 20210114
  Serious: Yes (Other)
  Sender: FDA-Public Use
  Company Number: AR-PFIZER INC-2020417045

PATIENT
  Age: 59 Year
  Sex: Male

DRUGS (1)
  1. SUTENT [Suspect]
     Active Substance: SUNITINIB MALATE
     Indication: RENAL CANCER
     Dosage: 50 MG, CYCLIC (DAILY 4X2 SCHEME)
     Dates: start: 20190801, end: 201909

REACTIONS (5)
  - Renal impairment [Unknown]
  - Coagulopathy [Unknown]
  - Malaise [Unknown]
  - Gangrene [Unknown]
  - Renal disorder [Unknown]

NARRATIVE: CASE EVENT DATE: 201909
